FAERS Safety Report 8558770-7 (Version None)
Quarter: 2012Q3

REPORT INFORMATION
  Report Type: 
  Country: None (occurrence: None)
  Receive Date: 20120801
  Receipt Date: 20120723
  Transmission Date: 20120928
  Serious: Yes (Hospitalization, Other)
  Sender: FDA-Public Use
  Company Number: US-009507513-1202USA03890

PATIENT

DRUGS (9)
  1. FOSAMAX [Suspect]
     Indication: OSTEOPOROSIS
  2. ASCORBIC ACID [Concomitant]
  3. ATENOLOL [Concomitant]
     Indication: PRODUCT USED FOR UNKNOWN INDICATION
     Dosage: UNK
     Dates: start: 20001201
  4. MK-9278 [Concomitant]
  5. CORTICOSTEROIDS (UNSPECIFIED) [Concomitant]
     Dates: start: 19970101
  6. FOSAMAX PLUS D [Suspect]
     Indication: OSTEOPENIA
     Dosage: 70 MG, QW
     Route: 048
     Dates: start: 20060705, end: 20090101
  7. FOSAMAX [Suspect]
     Indication: OSTEOPENIA
     Dosage: 70 MG, QW
     Route: 048
     Dates: start: 20010101, end: 20060601
  8. CALCIUM (UNSPECIFIED) [Concomitant]
  9. HUMIRA [Concomitant]
     Indication: RHEUMATOID ARTHRITIS
     Dosage: UNK
     Route: 058

REACTIONS (24)
  - FEMUR FRACTURE [None]
  - LIMB DISCOMFORT [None]
  - SYNOVIAL DISORDER [None]
  - COMPRESSION FRACTURE [None]
  - THYROID DISORDER [None]
  - LIMB INJURY [None]
  - LOW TURNOVER OSTEOPATHY [None]
  - ARTHROPATHY [None]
  - DEPRESSION [None]
  - BLOOD CHOLESTEROL INCREASED [None]
  - ANXIETY [None]
  - FEAR [None]
  - GAIT DISTURBANCE [None]
  - HYPERTENSION [None]
  - NEPHROLITHIASIS [None]
  - POOR QUALITY SLEEP [None]
  - MUSCULAR WEAKNESS [None]
  - INFECTION [None]
  - FALL [None]
  - ARTHRITIS [None]
  - HAEMATOMA [None]
  - ASTHMA [None]
  - ALCOHOL USE [None]
  - CARDIAC DISORDER [None]
